FAERS Safety Report 4976103-X (Version None)
Quarter: 2006Q2

REPORT INFORMATION
  Report Type: 
  Country: None (occurrence: None)
  Receive Date: 20060411
  Receipt Date: 20060324
  Transmission Date: 20061013
  Serious: Yes (Hospitalization, Other)
  Sender: FDA-Public Use
  Company Number: US200602000127

PATIENT
  Age: 47 Year
  Sex: Female
  Weight: 86.2 kg

DRUGS (11)
  1. ZYPREXA [Suspect]
     Indication: SCHIZOPHRENIA
     Dosage: SEE IMAGE
     Route: 048
     Dates: start: 19990714, end: 20001227
  2. ZYPREXA [Suspect]
     Indication: SCHIZOPHRENIA
     Dosage: SEE IMAGE
     Route: 048
     Dates: start: 20001227, end: 20010208
  3. ZYPREXA [Suspect]
     Indication: SCHIZOPHRENIA
     Dosage: SEE IMAGE
     Route: 048
     Dates: start: 20010208, end: 20030911
  4. ZYPREXA [Suspect]
     Indication: SCHIZOPHRENIA
     Dosage: SEE IMAGE
     Route: 048
     Dates: start: 20030911, end: 20030925
  5. ZYPREXA [Suspect]
     Indication: SCHIZOPHRENIA
     Dosage: SEE IMAGE
     Route: 048
     Dates: start: 20040617, end: 20050624
  6. PROZAC [Concomitant]
  7. DEPAKOTE [Concomitant]
  8. TRAZODONE HCL [Concomitant]
  9. SEROQUEL [Concomitant]
  10. PAXIL [Concomitant]
  11. KLONOPIN [Concomitant]

REACTIONS (11)
  - BLOOD TRIGLYCERIDES INCREASED [None]
  - DIABETES MELLITUS NON-INSULIN-DEPENDENT [None]
  - GASTRITIS [None]
  - HAEMATOCRIT DECREASED [None]
  - HAEMORRHOIDS [None]
  - HYPERCHOLESTEROLAEMIA [None]
  - RECTAL HAEMORRHAGE [None]
  - WEIGHT DECREASED [None]
  - WEIGHT FLUCTUATION [None]
  - WEIGHT INCREASED [None]
  - WHITE BLOOD CELL COUNT INCREASED [None]
